FAERS Safety Report 10187280 (Version 1)
Quarter: 2014Q2

REPORT INFORMATION
  Report Type: Spontaneous
  Country: JP (occurrence: JP)
  Receive Date: 20140522
  Receipt Date: 20140522
  Transmission Date: 20141212
  Serious: Yes (Other)
  Sender: FDA-Public Use
  Company Number: PHHY2014JP061532

PATIENT
  Age: 59 Year
  Sex: Male

DRUGS (5)
  1. BASILIXIMAB [Suspect]
     Indication: IMMUNOSUPPRESSION
  2. TACROLIMUS [Suspect]
     Indication: IMMUNOSUPPRESSION
  3. MYCOPHENOLATE MOFETIL [Suspect]
     Indication: IMMUNOSUPPRESSION
  4. CORTICOSTEROIDS [Suspect]
     Indication: IMMUNOSUPPRESSION
  5. RITUXIMAB [Suspect]
     Indication: IMMUNOSUPPRESSION
     Dosage: 200 MG, UNK
     Route: 041

REACTIONS (8)
  - IgA nephropathy [Unknown]
  - Proteinuria [Unknown]
  - Haematuria [Unknown]
  - Glomerulonephritis proliferative [Unknown]
  - Complications of transplanted kidney [Unknown]
  - Renal tubular atrophy [Unknown]
  - Kidney fibrosis [Unknown]
  - Renal failure chronic [Unknown]
